FAERS Safety Report 4306115-0 (Version None)
Quarter: 2004Q1

REPORT INFORMATION
  Report Type: 
  Country: None (occurrence: None)
  Receive Date: 20040225
  Receipt Date: 20030211
  Transmission Date: 20041129
  Serious: No
  Sender: FDA-Public Use
  Company Number: US-BRISTOL-MYERS SQUIBB COMPANY-12186391

PATIENT
  Age: 48 Year
  Sex: Female

DRUGS (5)
  1. EXCEDRIN (MIGRAINE) [Suspect]
     Indication: MIGRAINE
     Route: 048
     Dates: start: 20020206, end: 20020206
  2. SYNTHROID [Concomitant]
  3. GLUCOTROL [Concomitant]
  4. BLOOD PRESSURE MEDICATION [Concomitant]
  5. PREVACID [Concomitant]

REACTIONS (1)
  - DRUG INEFFECTIVE [None]
